FAERS Safety Report 16690049 (Version 2)
Quarter: 2019Q4

REPORT INFORMATION
  Report Type: Spontaneous
  Country: PK (occurrence: PK)
  Receive Date: 20190809
  Receipt Date: 20191015
  Transmission Date: 20200122
  Serious: Yes (Other)
  Sender: FDA-Public Use
  Company Number: PK-BAUSCH-BL-2019-022551

PATIENT
  Age: 20 Year
  Sex: Female

DRUGS (1)
  1. METFORMIN [Suspect]
     Active Substance: METFORMIN HYDROCHLORIDE
     Indication: POLYCYSTIC OVARIES
     Route: 065

REACTIONS (16)
  - Breast tenderness [Unknown]
  - Hyperuricaemia [Recovering/Resolving]
  - Migraine [Unknown]
  - Neuralgia [Unknown]
  - Rheumatic fever [Unknown]
  - Type II hypersensitivity [Unknown]
  - Tonsillitis [Unknown]
  - Axillary pain [Unknown]
  - Mood altered [Recovering/Resolving]
  - Myalgia [Recovering/Resolving]
  - Arthralgia [Unknown]
  - Sinusitis [Unknown]
  - Pharyngitis [Unknown]
  - Palpitations [Unknown]
  - Cluster headache [Unknown]
  - Menorrhagia [Unknown]
